FAERS Safety Report 8866308 (Version 1)
Quarter: 2012Q4

REPORT INFORMATION
  Report Type: 
  Country: FR (occurrence: FR)
  Receive Date: 20121025
  Receipt Date: 20121025
  Transmission Date: 20130627
  Serious: Yes (Other)
  Sender: FDA-Public Use
  Company Number: FR-ROCHE-1148996

PATIENT
  Age: 68 Year

DRUGS (10)
  1. RITUXIMAB [Suspect]
     Indication: NON-HODGKIN^S LYMPHOMA
     Dosage: day 1
     Route: 065
  2. CYCLOPHOSPHAMIDE [Suspect]
     Indication: NON-HODGKIN^S LYMPHOMA
     Dosage: d1
     Route: 042
  3. DOXORUBICINE [Suspect]
     Indication: NON-HODGKIN^S LYMPHOMA
     Dosage: d1
     Route: 042
  4. PREDNISONE [Suspect]
     Indication: NON-HODGKIN^S LYMPHOMA
     Dosage: d1-5
     Route: 065
  5. METHOTREXATE [Suspect]
     Indication: NON-HODGKIN^S LYMPHOMA
     Route: 042
  6. CYTARABINE [Suspect]
     Indication: NON-HODGKIN^S LYMPHOMA
     Dosage: d5
     Route: 065
  7. CYTARABINE [Suspect]
     Dosage: 24 Gy C2
     Route: 037
  8. MITOXANTRONE [Suspect]
     Indication: NON-HODGKIN^S LYMPHOMA
     Dosage: d1
     Route: 042
  9. IFOSFAMIDE [Suspect]
     Indication: NON-HODGKIN^S LYMPHOMA
     Dosage: d1-3
     Route: 042
  10. ETOPOSIDE [Suspect]
     Indication: NON-HODGKIN^S LYMPHOMA
     Dosage: d1-3
     Route: 042

REACTIONS (1)
  - Cerebellar syndrome [Unknown]
